FAERS Safety Report 5199908-1 (Version None)
Quarter: 2007Q1

REPORT INFORMATION
  Report Type: 
  Country: None (occurrence: None)
  Receive Date: 20070102
  Receipt Date: 20070102
  Transmission Date: 20070707
  Serious: No
  Sender: FDA-Public Use
  Company Number: None

PATIENT
  Age: 56 Year
  Sex: Female
  Weight: 61.2356 kg

DRUGS (1)
  1. XANAX [Suspect]
     Indication: ANXIETY
     Dosage: 1 TABLET  3 TIMES PER DAY  PO
     Route: 048

REACTIONS (24)
  - ANXIETY [None]
  - DEPRESSION [None]
  - DIARRHOEA [None]
  - DRUG WITHDRAWAL SYNDROME [None]
  - EXAGGERATED STARTLE RESPONSE [None]
  - FATIGUE [None]
  - FEELING ABNORMAL [None]
  - GASTRIC DISORDER [None]
  - HYPERACUSIS [None]
  - HYPOAESTHESIA [None]
  - INSOMNIA [None]
  - MEMORY IMPAIRMENT [None]
  - MOOD SWINGS [None]
  - NAUSEA [None]
  - NERVOUS SYSTEM DISORDER [None]
  - PALPITATIONS [None]
  - PANIC DISORDER [None]
  - PARAESTHESIA [None]
  - PHOTOPHOBIA [None]
  - SOMNOLENCE [None]
  - TEMPERATURE INTOLERANCE [None]
  - THINKING ABNORMAL [None]
  - TREMOR [None]
  - VERTIGO [None]
